FAERS Safety Report 22001273 (Version 1)
Quarter: 2023Q1

REPORT INFORMATION
  Report Type: Spontaneous
  Country: HU (occurrence: HU)
  Receive Date: 20230216
  Receipt Date: 20230216
  Transmission Date: 20230418
  Serious: Yes (Other)
  Sender: FDA-Public Use
  Company Number: HU-GLAXOSMITHKLINE-HU2023GSK025016

PATIENT

DRUGS (3)
  1. BUPROPION HYDROCHLORIDE [Suspect]
     Active Substance: BUPROPION HYDROCHLORIDE
     Indication: Anxiety
     Dosage: UNK
  2. BUPROPION HYDROCHLORIDE [Suspect]
     Active Substance: BUPROPION HYDROCHLORIDE
     Indication: Death of relative
  3. BUPROPION HYDROCHLORIDE [Suspect]
     Active Substance: BUPROPION HYDROCHLORIDE
     Indication: Depression

REACTIONS (9)
  - Extrasystoles [Unknown]
  - Malaise [Unknown]
  - Headache [Unknown]
  - Thinking abnormal [Unknown]
  - Confusional state [Unknown]
  - Influenza [Unknown]
  - Cognitive disorder [Unknown]
  - Product counterfeit [Unknown]
  - Poor quality product administered [Unknown]
